FAERS Safety Report 25982818 (Version 1)
Quarter: 2025Q4

REPORT INFORMATION
  Report Type: Spontaneous
  Country: CN (occurrence: CN)
  Receive Date: 20251031
  Receipt Date: 20251031
  Transmission Date: 20260118
  Serious: Yes (Hospitalization, Other)
  Sender: Onesource Specialty Pharma
  Company Number: CN-STRIDES ARCOLAB LIMITED-2025OS001062

PATIENT
  Age: 35 Year
  Sex: Male

DRUGS (9)
  1. CYCLOSPORINE [Suspect]
     Active Substance: CYCLOSPORINE
     Indication: Immunosuppressant drug therapy
     Dosage: 35 MILLIGRAM, BID
     Route: 065
  2. THALIDOMIDE [Suspect]
     Active Substance: THALIDOMIDE
     Indication: Haematochezia
     Dosage: 100 MILLIGRAM, AT NIGHT
     Route: 048
  3. THALIDOMIDE [Suspect]
     Active Substance: THALIDOMIDE
     Indication: Immunosuppressant drug therapy
     Dosage: 100 MILLIGRAM
     Route: 065
  4. METHYLPREDNISOLONE [Concomitant]
     Active Substance: METHYLPREDNISOLONE
     Indication: Haematochezia
     Dosage: 80 MILLIGRAM, QD
     Route: 042
  5. Immunoglobulin [Concomitant]
     Indication: Haematochezia
     Dosage: FOR 3 CONSECUTIVE DAYS
     Route: 042
  6. VALPROATE SODIUM [Concomitant]
     Active Substance: VALPROATE SODIUM
     Indication: Seizure
     Dosage: UNK
     Route: 065
  7. INFLIXIMAB [Concomitant]
     Active Substance: INFLIXIMAB
     Indication: Haematochezia
     Dosage: 250-300 MG (5 MG/KG) ON WEEKS 0, 2, AND 6 FOLLOWED BY MAINTENANCE INFUSIONS AT 8-WEEK INTERVALS
     Route: 065
  8. PREDNISONE [Concomitant]
     Active Substance: PREDNISONE
     Indication: Behcet^s syndrome
     Dosage: UNK
     Route: 065
  9. THALIDOMIDE [Concomitant]
     Active Substance: THALIDOMIDE
     Indication: Behcet^s syndrome
     Dosage: UNK
     Route: 065

REACTIONS (3)
  - Tubulointerstitial nephritis [None]
  - Renal tubular necrosis [None]
  - Drug ineffective for unapproved indication [Unknown]
